FAERS Safety Report 13654575 (Version 1)
Quarter: 2017Q2

REPORT INFORMATION
  Report Type: Spontaneous
  Country: US (occurrence: US)
  Receive Date: 20170615
  Receipt Date: 20170615
  Transmission Date: 20170830
  Serious: Yes (Hospitalization)
  Sender: FDA-Public Use
  Company Number: US-BEH-2017081136

PATIENT
  Sex: Female
  Weight: 87.75 kg

DRUGS (22)
  1. HIZENTRA [Suspect]
     Active Substance: HUMAN IMMUNOGLOBULIN G
     Indication: IMMUNODEFICIENCY COMMON VARIABLE
     Dosage: 20 G, QOW
     Route: 058
     Dates: start: 20130906
  2. HIZENTRA [Suspect]
     Active Substance: HUMAN IMMUNOGLOBULIN G
     Dosage: UNK
     Route: 058
  3. ACETAMINOPHEN. [Concomitant]
     Active Substance: ACETAMINOPHEN
  4. VITAMIN D3 [Concomitant]
     Active Substance: CHOLECALCIFEROL
  5. ALENDRONATE [Concomitant]
     Active Substance: ALENDRONATE SODIUM
  6. LEVOTHYROXINE. [Concomitant]
     Active Substance: LEVOTHYROXINE
  7. XOPENEX [Concomitant]
     Active Substance: LEVALBUTEROL HYDROCHLORIDE
  8. DIPHENHYDRAMINE. [Concomitant]
     Active Substance: DIPHENHYDRAMINE
  9. NOVOLOG [Concomitant]
     Active Substance: INSULIN ASPART
  10. MULTIVITAMINS [Concomitant]
     Active Substance: VITAMINS
  11. BROVANA [Concomitant]
     Active Substance: ARFORMOTEROL TARTRATE
  12. EPIPEN [Concomitant]
     Active Substance: EPINEPHRINE
  13. PREDNISONE. [Concomitant]
     Active Substance: PREDNISONE
  14. DILTIAZEM. [Concomitant]
     Active Substance: DILTIAZEM
  15. POTASSIUM CHLORIDE. [Concomitant]
     Active Substance: POTASSIUM CHLORIDE
  16. ROPINIROLE. [Concomitant]
     Active Substance: ROPINIROLE
  17. INSULIN [Concomitant]
     Active Substance: INSULIN NOS
  18. ADVAIR HFA [Concomitant]
     Active Substance: FLUTICASONE PROPIONATE\SALMETEROL XINAFOATE
  19. ZINC. [Concomitant]
     Active Substance: ZINC
  20. CALCIUM                            /00060701/ [Concomitant]
     Active Substance: CALCIUM
  21. SINGULAIR [Concomitant]
     Active Substance: MONTELUKAST SODIUM
  22. VITAMIN B12 [Concomitant]
     Active Substance: CYANOCOBALAMIN

REACTIONS (1)
  - Thrombosis [Unknown]
